FAERS Safety Report 4843887-0 (Version None)
Quarter: 2005Q4

REPORT INFORMATION
  Report Type: 
  Country: None (occurrence: None)
  Receive Date: 20051130
  Receipt Date: 20051130
  Transmission Date: 20060501
  Serious: Yes (Other)
  Sender: FDA-Public Use
  Company Number: None

PATIENT
  Sex: Male

DRUGS (2)
  1. ADALIMUMAB    40 MG/ 0.8 ML [Suspect]
     Indication: RHEUMATOID ARTHRITIS
     Dosage: 40 MG   Q 2 WEEKS   SQ
     Route: 058
     Dates: start: 20050707, end: 20050707
  2. LISINOPRIL [Concomitant]

REACTIONS (1)
  - RASH [None]
